FAERS Safety Report 16302695 (Version 2)
Quarter: 2019Q3

REPORT INFORMATION
  Report Type: Report from Study
  Country: None (occurrence: AR)
  Receive Date: 20190513
  Receipt Date: 20190902
  Transmission Date: 20191004
  Serious: Yes (Other)
  Sender: FDA-Public Use
  Company Number: AR-ABBVIE-19K-007-2779209-00

PATIENT
  Age: 48 Year
  Sex: Male

DRUGS (1)
  1. HUMIRA [Suspect]
     Active Substance: ADALIMUMAB
     Indication: PSORIATIC ARTHROPATHY
     Route: 058
     Dates: start: 20120921

REACTIONS (5)
  - Joint effusion [Unknown]
  - Psoriatic arthropathy [Recovered/Resolved]
  - Synovitis [Recovering/Resolving]
  - Post procedural complication [Unknown]
  - Arthritis [Recovered/Resolved]

NARRATIVE: CASE EVENT DATE: 201806
